FAERS Safety Report 9209549 (Version 2)
Quarter: 2013Q2

REPORT INFORMATION
  Report Type: Report from Study
  Country: CA (occurrence: CA)
  Receive Date: 20130404
  Receipt Date: 20130605
  Transmission Date: 20140414
  Serious: Yes (Other)
  Sender: FDA-Public Use
  Company Number: CA-JNJFOC-20130400986

PATIENT
  Age: 79 Year
  Sex: Female

DRUGS (8)
  1. SIMPONI [Suspect]
     Indication: RHEUMATOID ARTHRITIS
     Route: 058
     Dates: start: 20101028
  2. FERROUS SULFATE [Concomitant]
  3. VITAMIN D [Concomitant]
  4. PREDNISONE [Concomitant]
  5. VITAMIN B12 [Concomitant]
  6. MTX [Concomitant]
  7. FOLIC ACID [Concomitant]
  8. RABEPRAZOLE [Concomitant]

REACTIONS (1)
  - Macular degeneration [Unknown]
